FAERS Safety Report 24070016 (Version 2)
Quarter: 2024Q3

REPORT INFORMATION
  Report Type: Report from Study
  Country: RO (occurrence: RO)
  Receive Date: 20240710
  Receipt Date: 20240710
  Transmission Date: 20241016
  Serious: No
  Sender: ROCHE
  Company Number: RO-ROCHE-3148675

PATIENT
  Age: 74 Year
  Sex: Male
  Weight: 71.0 kg

DRUGS (2)
  1. ALECTINIB [Suspect]
     Active Substance: ALECTINIB
     Indication: Lung cancer metastatic
     Route: 048
     Dates: start: 20220527
  2. LORLATINIB [Concomitant]
     Active Substance: LORLATINIB
     Dates: start: 20221117, end: 20221117

REACTIONS (2)
  - Anaemia [Recovered/Resolved]
  - Anaemia [Recovering/Resolving]

NARRATIVE: CASE EVENT DATE: 20220722
